FAERS Safety Report 22974106 (Version 5)
Quarter: 2023Q4

REPORT INFORMATION
  Report Type: Report from Study
  Country: FR (occurrence: FR)
  Receive Date: 20230923
  Receipt Date: 20231103
  Transmission Date: 20240109
  Serious: Yes (Death, Life-Threatening, Hospitalization)
  Sender: FDA-Public Use
  Company Number: FR-GENMAB-2023-01718

PATIENT
  Age: 79 Year
  Sex: Male
  Weight: 80 kg

DRUGS (22)
  1. EPCORITAMAB [Suspect]
     Active Substance: EPCORITAMAB
     Indication: Diffuse large B-cell lymphoma
     Dosage: PRIMING DOSE, DOSE: C1, D1  FREQUENCY: TOTAL
     Route: 058
     Dates: start: 20230817, end: 20230817
  2. EPCORITAMAB [Suspect]
     Active Substance: EPCORITAMAB
     Dosage: INTERMEDIATE DOSE, DOSE: C1, D8  FREQUENCY: TOTAL
     Route: 058
     Dates: start: 20230824, end: 20230824
  3. EPCORITAMAB [Suspect]
     Active Substance: EPCORITAMAB
     Dosage: FULL DOSE, DOSE: C1, D15 + 22
     Route: 058
     Dates: start: 20230831, end: 20230914
  4. RITUXIMAB [Suspect]
     Active Substance: RITUXIMAB
     Indication: Diffuse large B-cell lymphoma
     Dosage: 740 MILLIGRAM, 1Q3W
     Route: 042
     Dates: start: 20230817, end: 20230817
  5. RITUXIMAB [Suspect]
     Active Substance: RITUXIMAB
     Dosage: 720 MILLIGRAM, 1Q3W
     Route: 042
     Dates: start: 20230907, end: 20230907
  6. CYCLOPHOSPHAMIDE [Suspect]
     Active Substance: CYCLOPHOSPHAMIDE
     Indication: Diffuse large B-cell lymphoma
     Dosage: 1470 MILLIGRAM, 1Q3W
     Route: 042
     Dates: start: 20230817, end: 20230817
  7. CYCLOPHOSPHAMIDE [Suspect]
     Active Substance: CYCLOPHOSPHAMIDE
     Dosage: 1450 MILLIGRAM, 1Q3W
     Route: 042
     Dates: start: 20230907, end: 20230907
  8. DOXORUBICIN [Suspect]
     Active Substance: DOXORUBICIN
     Indication: Diffuse large B-cell lymphoma
     Dosage: 98 MG, EVERY 3 WEEKS
     Route: 042
     Dates: start: 20230817, end: 20230817
  9. DOXORUBICIN [Suspect]
     Active Substance: DOXORUBICIN
     Dosage: 97 MILLIGRAM, 1Q3W
     Route: 042
     Dates: start: 20230907, end: 20230907
  10. VINCRISTINE [Suspect]
     Active Substance: VINCRISTINE
     Indication: Diffuse large B-cell lymphoma
     Dosage: 2 MG, EVERY 3 WEEKS
     Route: 042
     Dates: start: 20230817, end: 20230907
  11. PREDNISONE [Suspect]
     Active Substance: PREDNISONE
     Indication: Diffuse large B-cell lymphoma
     Dosage: C1-6, DAY 1-5
     Route: 048
     Dates: start: 20230818, end: 20230911
  12. BACTRIM [Concomitant]
     Active Substance: SULFAMETHOXAZOLE\TRIMETHOPRIM
     Indication: Antifungal prophylaxis
     Dosage: DOSE: 3/WEEKS
     Dates: start: 20230817
  13. FILGRASTIM [Concomitant]
     Active Substance: FILGRASTIM
     Indication: Antibiotic prophylaxis
     Dosage: DOSE: 48 U
     Dates: start: 20230817
  14. FUNGIZONE [Concomitant]
     Active Substance: AMPHOTERICIN B
     Indication: Infection prophylaxis
     Dosage: DOSE: 3/DAYS
     Dates: start: 2023
  15. PRIMPERAN [Concomitant]
     Active Substance: METOCLOPRAMIDE HYDROCHLORIDE
     Indication: Prophylaxis of nausea and vomiting
     Dosage: FREQUENCY: AS NECESSARY
     Dates: start: 20230817
  16. VALACYCLOVIR HYDROCHLORIDE [Concomitant]
     Active Substance: VALACYCLOVIR HYDROCHLORIDE
     Indication: Antiviral prophylaxis
     Dosage: FREQUENCY: 2/DAYS
     Dates: start: 20230817
  17. SIMVASTATINE A [Concomitant]
     Indication: Dyslipidaemia
     Dosage: 20 MG, EVERY 1 DAYS
  18. ALLOPURINOL SODIUM [Concomitant]
     Active Substance: ALLOPURINOL SODIUM
     Indication: Hyperuricaemia
     Dosage: 100 MILLIGRAM, QD
  19. POLYETHYLENE GLYCOLS [Concomitant]
     Active Substance: POLYETHYLENE GLYCOLS
     Indication: Constipation
     Dosage: FREQUENCY: OCCASIONAL
     Dates: start: 20230905
  20. ACETAMINOPHEN [Concomitant]
     Active Substance: ACETAMINOPHEN
     Indication: Pain prophylaxis
     Dosage: FREQUENCY: 2/DAYS
  21. .ALPHA.-TOCOPHEROL ACETATE, D- [Concomitant]
     Active Substance: .ALPHA.-TOCOPHEROL ACETATE, D-
     Indication: Vitamin supplementation
     Dosage: 1000 MILLIGRAM, EVERY 1 DAYS
  22. TRAMADOL HYDROCHLORIDE [Concomitant]
     Active Substance: TRAMADOL HYDROCHLORIDE
     Indication: Cancer pain
     Dosage: FREQUENCY: 2/DAYS

REACTIONS (2)
  - Septic shock [Fatal]
  - Septic shock [Not Recovered/Not Resolved]

NARRATIVE: CASE EVENT DATE: 20230916
